FAERS Safety Report 18919978 (Version 1)
Quarter: 2021Q1

REPORT INFORMATION
  Report Type: Spontaneous
  Country: US (occurrence: US)
  Receive Date: 20210222
  Receipt Date: 20210222
  Transmission Date: 20210420
  Serious: No
  Sender: FDA-Public Use
  Company Number: US-ASTRAZENECA-2021A061847

PATIENT
  Sex: Male
  Weight: 90.7 kg

DRUGS (2)
  1. SYMBICORT [Suspect]
     Active Substance: BUDESONIDE\FORMOTEROL FUMARATE DIHYDRATE
     Indication: COVID-19 PNEUMONIA
     Dosage: 2 PUFFS TWICE DAILY (2 PUFFS IN THE MORNING, 2 PUFFS IN THE EVENING)
     Route: 055
     Dates: start: 202101
  2. FLUTICASONE. [Concomitant]
     Active Substance: FLUTICASONE

REACTIONS (6)
  - Headache [Unknown]
  - Candida infection [Unknown]
  - Off label use [Unknown]
  - Lung disorder [Unknown]
  - Productive cough [Unknown]
  - Drug ineffective [Unknown]
